FAERS Safety Report 5444206-1 (Version None)
Quarter: 2007Q3

REPORT INFORMATION
  Report Type: 
  Country: None (occurrence: None)
  Receive Date: 20070906
  Receipt Date: 20070824
  Transmission Date: 20080115
  Serious: Yes (Hospitalization)
  Sender: FDA-Public Use
  Company Number: US-KINGPHARMUSA00001-K200701089

PATIENT

DRUGS (9)
  1. ALTACE [Suspect]
     Dosage: 5 MG, QD
     Route: 048
     Dates: end: 20070626
  2. LASILIX                            /00032601/ [Suspect]
     Dosage: 120 MG, QD
     Route: 048
     Dates: end: 20070626
  3. PYOSTACINE [Concomitant]
     Indication: ERYSIPELAS
     Route: 048
     Dates: start: 20070619, end: 20070626
  4. CORDARONE /00133102/ [Concomitant]
     Dosage: 200 MG, QD
     Route: 048
  5. PREVISCAN /00789001/ [Concomitant]
     Dosage: UNK, QD
     Route: 048
  6. DIGOXIN [Concomitant]
     Dosage: .25 MG, QD
     Route: 048
  7. POTASSIUM CHLORIDE [Concomitant]
     Dosage: 1200 MG, QD
     Route: 048
  8. GLYBURIDE [Concomitant]
     Dosage: 10 MG, QD
     Route: 048
  9. METFORMIN HCL [Concomitant]
     Dosage: 2000 MG, QD
     Route: 048

REACTIONS (4)
  - DEHYDRATION [None]
  - DIARRHOEA [None]
  - DRUG INTERACTION [None]
  - RENAL FAILURE ACUTE [None]
